FAERS Safety Report 5816095-4 (Version None)
Quarter: 2008Q3

REPORT INFORMATION
  Report Type: 
  Country: None (occurrence: None)
  Receive Date: 20080717
  Receipt Date: 20071214
  Transmission Date: 20090109
  Serious: Yes (Disabling)
  Sender: FDA-Public Use
  Company Number: SP01647

PATIENT
  Age: 57 Year
  Sex: Female
  Weight: 58.9676 kg

DRUGS (2)
  1. XIFAXAN [Suspect]
     Indication: HEPATIC ENCEPHALOPATHY
     Dosage: 800 MG (200 MG,4 IN 1 D),ORAL
     Route: 048
     Dates: start: 20071010, end: 20071022
  2. XIFAXAN [Suspect]
     Indication: PROPHYLAXIS
     Dosage: 800 MG (200 MG,4 IN 1 D),ORAL
     Route: 048
     Dates: start: 20071010, end: 20071022

REACTIONS (2)
  - CHEST PAIN [None]
  - PRURITUS [None]
